FAERS Safety Report 10203954 (Version 2)
Quarter: 2014Q2

REPORT INFORMATION
  Report Type: Spontaneous
  Country: US (occurrence: US)
  Receive Date: 20140529
  Receipt Date: 20140529
  Transmission Date: 20141212
  Serious: No
  Sender: FDA-Public Use
  Company Number: US-MYLANLABS-2014S1008980

PATIENT
  Age: 54 Year
  Sex: Male
  Weight: 99.79 kg

DRUGS (3)
  1. RABEPRAZOLE SODIUM DELAYED-RELEASE TABLETS [Suspect]
     Indication: GASTROOESOPHAGEAL REFLUX DISEASE
     Route: 048
     Dates: start: 201310
  2. BISOPROLOL [Concomitant]
     Indication: BLOOD PRESSURE INCREASED
     Dosage: OTHER INDICATION SLOW PULSE RATE
     Route: 048
     Dates: start: 2013
  3. LISINOPRIL/HCTZ [Concomitant]
     Indication: BLOOD PRESSURE INCREASED
     Dosage: 25/25MG
     Route: 048

REACTIONS (5)
  - Drug effect decreased [Not Recovered/Not Resolved]
  - Dyspepsia [Not Recovered/Not Resolved]
  - Dyspepsia [Not Recovered/Not Resolved]
  - Faeces hard [Recovering/Resolving]
  - Haemorrhoids [Recovered/Resolved]
